FAERS Safety Report 6458792-6 (Version None)
Quarter: 2009Q4

REPORT INFORMATION
  Report Type: 
  Country: None (occurrence: None)
  Receive Date: 20091127
  Receipt Date: 20091116
  Transmission Date: 20100525
  Serious: Yes (Other)
  Sender: FDA-Public Use
  Company Number: ES-ROCHE-670198

PATIENT
  Sex: Male

DRUGS (3)
  1. PEG-INTERFERON ALFA 2A (RO 25-8310) [Suspect]
     Route: 065
  2. RIBAVIRIN [Suspect]
     Dosage: DOSE: 600-1500 MG DAILY
     Route: 048
  3. MILTEFOSINE [Suspect]
     Indication: INFECTION PROPHYLAXIS
     Route: 048

REACTIONS (1)
  - VISCERAL LEISHMANIASIS [None]
